FAERS Safety Report 24403807 (Version 1)
Quarter: 2024Q4

REPORT INFORMATION
  Report Type: Spontaneous
  Country: US (occurrence: US)
  Receive Date: 20241007
  Receipt Date: 20241007
  Transmission Date: 20250114
  Serious: No
  Sender: RANBAXY
  Company Number: US-SUN PHARMACEUTICAL INDUSTRIES LTD-2024R1-455522

PATIENT
  Sex: Female

DRUGS (14)
  1. CEQUA [Suspect]
     Active Substance: CYCLOSPORINE
     Indication: Product used for unknown indication
     Dosage: UNK
     Route: 047
     Dates: start: 20240611
  2. PRASTERONE [Concomitant]
     Active Substance: PRASTERONE
     Indication: Product used for unknown indication
     Dosage: UNK
     Route: 065
  3. EZEZTMIBE [Concomitant]
     Indication: Product used for unknown indication
     Dosage: UNK
     Route: 065
  4. GABAPENTIN [Concomitant]
     Active Substance: GABAPENTIN
     Indication: Product used for unknown indication
     Dosage: UNK
     Route: 065
  5. LUTEIN [Concomitant]
     Active Substance: LUTEIN
     Indication: Product used for unknown indication
     Dosage: UNK
     Route: 065
  6. LITHIUM OROTATE [Concomitant]
     Active Substance: LITHIUM OROTATE
     Indication: Product used for unknown indication
     Dosage: UNK
     Route: 065
  7. PANTROPOZOLE [Concomitant]
     Indication: Product used for unknown indication
     Dosage: UNK
     Route: 065
  8. PROGESTERONE [Concomitant]
     Active Substance: PROGESTERONE
     Indication: Product used for unknown indication
     Dosage: UNK
     Route: 065
  9. RYBELSIS [Concomitant]
     Indication: Product used for unknown indication
     Dosage: UNK
     Route: 065
  10. TELMISARTIN [Concomitant]
     Indication: Product used for unknown indication
     Dosage: UNK
     Route: 065
  11. TRAMADOL [Concomitant]
     Active Substance: TRAMADOL
     Indication: Product used for unknown indication
     Dosage: UNK
     Route: 065
  12. UBIQUINOL (CO-Q10) [Concomitant]
     Indication: Product used for unknown indication
     Dosage: UNK
     Route: 065
  13. VITAMIN K-2 [Concomitant]
     Indication: Product used for unknown indication
     Dosage: UNK
     Route: 065
  14. VIVELLE-DOT [Concomitant]
     Active Substance: ESTRADIOL
     Indication: Product used for unknown indication
     Dosage: UNK
     Route: 065

REACTIONS (2)
  - Drug hypersensitivity [Unknown]
  - Rash [Unknown]
